FAERS Safety Report 8116431-2 (Version None)
Quarter: 2012Q1

REPORT INFORMATION
  Report Type: 
  Country: None (occurrence: None)
  Receive Date: 20120206
  Receipt Date: 20120203
  Transmission Date: 20120608
  Serious: No
  Sender: FDA-Public Use
  Company Number: US-TEVA-320819USA

PATIENT
  Sex: Female
  Weight: 47.216 kg

DRUGS (8)
  1. AZILECT [Suspect]
     Indication: PARKINSON'S DISEASE
     Dosage: 1 MILLIGRAM;
     Route: 048
     Dates: start: 20120101
  2. ESOMEPRAZOLE MAGNESIUM [Concomitant]
  3. ESCITALOPRAM OXALATE [Concomitant]
  4. IRBESARTAN [Concomitant]
  5. ESTROGENS CONJUGATED [Concomitant]
  6. DOCUSATE SODIUM [Concomitant]
  7. VITACAL                            /01535001/ [Concomitant]
  8. AMLODIPINE [Concomitant]

REACTIONS (1)
  - RASH ERYTHEMATOUS [None]
